FAERS Safety Report 10521784 (Version 2)
Quarter: 2014Q4

REPORT INFORMATION
  Report Type: Spontaneous
  Country: US (occurrence: US)
  Receive Date: 20141016
  Receipt Date: 20141016
  Transmission Date: 20150528
  Serious: Yes (Death, Hospitalization, Other)
  Sender: FDA-Public Use
  Company Number: US-GLAXOSMITHKLINE-A0870973A

PATIENT
  Sex: Male

DRUGS (1)
  1. ROSIGLITAZONE MALEATE. [Suspect]
     Active Substance: ROSIGLITAZONE MALEATE
     Indication: DIABETES MELLITUS
     Dosage: UNK, QD
     Route: 048
     Dates: start: 200011, end: 200301

REACTIONS (7)
  - Pleural effusion [Unknown]
  - Cardiac failure congestive [Fatal]
  - Acute myocardial infarction [Fatal]
  - Atrial fibrillation [Unknown]
  - Gastric haemorrhage [Fatal]
  - Coronary artery disease [Unknown]
  - Peripheral vascular disorder [Unknown]
